FAERS Safety Report 19412213 (Version 3)
Quarter: 2021Q2

REPORT INFORMATION
  Report Type: Report from Study
  Country: CL (occurrence: CL)
  Receive Date: 20210614
  Receipt Date: 20210626
  Transmission Date: 20210717
  Serious: Yes (Hospitalization)
  Sender: FDA-Public Use
  Company Number: NVSC2021CL127671

PATIENT
  Sex: Male

DRUGS (1)
  1. COSENTYX [Suspect]
     Active Substance: SECUKINUMAB
     Indication: PSORIATIC ARTHROPATHY
     Dosage: 300 MG, QMO
     Route: 058
     Dates: start: 20210203

REACTIONS (9)
  - Hypertension [Not Recovered/Not Resolved]
  - COVID-19 pneumonia [Not Recovered/Not Resolved]
  - Ulcer [Unknown]
  - Arthritis [Unknown]
  - Benign hepatic neoplasm [Unknown]
  - Swelling [Unknown]
  - Unevaluable event [Unknown]
  - Moaning [Unknown]
  - Gastritis [Unknown]
